FAERS Safety Report 21757430 (Version 1)
Quarter: 2022Q4

REPORT INFORMATION
  Report Type: Spontaneous
  Country: US (occurrence: US)
  Receive Date: 20221220
  Receipt Date: 20221220
  Transmission Date: 20230113
  Serious: No
  Sender: FDA-Public Use
  Company Number: US-VIIV HEALTHCARE LIMITED-US2022AMR187837

PATIENT
  Age: 63 Year
  Sex: Male

DRUGS (2)
  1. RILPIVIRINE [Suspect]
     Active Substance: RILPIVIRINE
     Indication: HIV infection
     Dosage: UNK, 0MG/3ML, 600 MG/900 MG
     Route: 065
     Dates: start: 20220901
  2. CABOTEGRAVIR [Suspect]
     Active Substance: CABOTEGRAVIR
     Indication: HIV infection
     Dosage: UNK, 0MG/3ML, 600 MG/900 MG
     Route: 065
     Dates: start: 20220901

REACTIONS (1)
  - Headache [Recovered/Resolved]
